FAERS Safety Report 18870966 (Version 2)
Quarter: 2021Q2

REPORT INFORMATION
  Report Type: Spontaneous
  Country: US (occurrence: US)
  Receive Date: 20210210
  Receipt Date: 20210412
  Transmission Date: 20210717
  Serious: No
  Sender: FDA-Public Use
  Company Number: US-GILEAD-2021-0515272

PATIENT
  Age: 50 Year
  Sex: Male

DRUGS (1)
  1. TRUVADA [Suspect]
     Active Substance: EMTRICITABINE\TENOFOVIR DISOPROXIL FUMARATE
     Indication: PROPHYLAXIS AGAINST HIV INFECTION
     Dosage: UNK
     Route: 048
     Dates: start: 20170605, end: 20190409

REACTIONS (5)
  - Protein total increased [Unknown]
  - Glomerular filtration rate increased [Unknown]
  - Spinal osteoarthritis [Not Recovered/Not Resolved]
  - Blood creatinine increased [Unknown]
  - Blood urea nitrogen/creatinine ratio increased [Not Recovered/Not Resolved]

NARRATIVE: CASE EVENT DATE: 201706
